FAERS Safety Report 4932501-1 (Version None)
Quarter: 2006Q1

REPORT INFORMATION
  Report Type: 
  Country: None (occurrence: None)
  Receive Date: 20060303
  Receipt Date: 20060221
  Transmission Date: 20060701
  Serious: Yes (Hospitalization)
  Sender: FDA-Public Use
  Company Number: US-MERCK-0602USA05226

PATIENT
  Age: 61 Year
  Sex: Male
  Weight: 116 kg

DRUGS (18)
  1. VIOXX [Suspect]
     Indication: ARTHRITIS
     Route: 048
     Dates: start: 20030801
  2. VICODIN ES [Concomitant]
     Indication: PAIN
     Route: 048
  3. METFORMIN HYDROCHLORIDE [Concomitant]
     Route: 065
  4. LANTUS [Concomitant]
     Route: 065
  5. TYLENOL (CAPLET) [Concomitant]
     Indication: ARTHRITIS
     Route: 065
  6. ALDACTONE [Concomitant]
     Route: 065
  7. AVAPRO [Concomitant]
     Indication: HYPERTENSION
     Route: 065
  8. AVANDIA [Concomitant]
     Indication: DIABETES MELLITUS
     Route: 065
  9. BYETTA [Concomitant]
     Indication: DIABETES MELLITUS
     Route: 065
  10. COREG [Concomitant]
     Indication: CARDIAC FAILURE
     Route: 065
  11. COREG [Concomitant]
     Indication: HYPERTENSION
     Route: 065
  12. CYMBALTA [Concomitant]
     Indication: ANXIETY
     Route: 065
  13. INSPIR [Concomitant]
     Indication: CARDIAC FAILURE
     Route: 065
  14. INSPIR [Concomitant]
     Indication: HYPERTENSION
     Route: 065
  15. MIDODRINE HYDROCHLORIDE [Concomitant]
     Indication: DIZZINESS
     Route: 065
  16. PLAVIX [Concomitant]
     Indication: CARDIAC DISORDER
     Route: 065
  17. TRICOR [Concomitant]
     Indication: BLOOD CHOLESTEROL
     Route: 065
  18. ASPIRIN [Concomitant]
     Route: 065
     Dates: start: 20031125

REACTIONS (3)
  - CARDIAC DISORDER [None]
  - MYOCARDIAL INFARCTION [None]
  - ROTATOR CUFF SYNDROME [None]
